FAERS Safety Report 12427991 (Version 1)
Quarter: 2016Q2

REPORT INFORMATION
  Report Type: Other
  Country: NO (occurrence: NO)
  Receive Date: 20160602
  Receipt Date: 20160602
  Transmission Date: 20160815
  Serious: Yes (Life-Threatening, Hospitalization, Disabling)
  Sender: FDA-Public Use
  Company Number: NO-TAKEDA-2016MPI004885

PATIENT
  Age: 54 Year
  Sex: Male

DRUGS (2)
  1. VELCADE [Suspect]
     Active Substance: BORTEZOMIB
     Indication: PLASMA CELL MYELOMA
     Dosage: 2.8 MG, UNK
     Route: 058
     Dates: start: 20160519
  2. VELCADE [Suspect]
     Active Substance: BORTEZOMIB
     Dosage: 2.8 MG, UNK
     Route: 058
     Dates: start: 20160427

REACTIONS (4)
  - Arrhythmia [Recovered/Resolved with Sequelae]
  - Atrioventricular block [Recovered/Resolved with Sequelae]
  - Bradycardia [Recovered/Resolved with Sequelae]
  - Circulatory collapse [Recovered/Resolved with Sequelae]

NARRATIVE: CASE EVENT DATE: 2016
